FAERS Safety Report 6282697-7 (Version None)
Quarter: 2009Q3

REPORT INFORMATION
  Report Type: 
  Country: None (occurrence: None)
  Receive Date: 20090724
  Receipt Date: 20090715
  Transmission Date: 20100115
  Serious: Yes (Life-Threatening, Hospitalization)
  Sender: FDA-Public Use
  Company Number: CA-WATSON-2009-05472

PATIENT
  Sex: Female

DRUGS (5)
  1. TRELSTAR DEPOT [Suspect]
     Indication: PROSTATE CANCER
     Dosage: 3.75 MG, UNK
     Route: 030
     Dates: start: 20040624, end: 20081204
  2. EXEMESTANE [Suspect]
     Indication: BREAST CANCER
     Dosage: 25 MG, UNK
     Route: 048
     Dates: start: 20041104, end: 20081223
  3. BUPROPION HCL [Concomitant]
     Indication: DEPRESSION
     Dosage: UNK
     Route: 048
     Dates: start: 20030101, end: 20051201
  4. PAROXETINE HCL [Concomitant]
     Indication: DEPRESSION
     Dosage: UNK
     Route: 048
     Dates: start: 20051201
  5. LORAZEPAM [Concomitant]
     Indication: DEPRESSION
     Dosage: UNK
     Route: 048
     Dates: start: 20040101

REACTIONS (2)
  - DEPRESSION [None]
  - SUICIDE ATTEMPT [None]
